FAERS Safety Report 8598486-4 (Version None)
Quarter: 2012Q3

REPORT INFORMATION
  Report Type: 
  Country: None (occurrence: None)
  Receive Date: 20120816
  Receipt Date: 20120807
  Transmission Date: 20120928
  Serious: Yes (Hospitalization)
  Sender: FDA-Public Use
  Company Number: US-ASTRAZENECA-2012SE55674

PATIENT
  Age: 81 Year
  Sex: Female

DRUGS (1)
  1. BRILINTA [Suspect]
     Route: 048

REACTIONS (1)
  - GASTROINTESTINAL HAEMORRHAGE [None]
